FAERS Safety Report 4893198-2 (Version None)
Quarter: 2005Q4

REPORT INFORMATION
  Report Type: 
  Country: None (occurrence: None)
  Receive Date: 20051223
  Receipt Date: 20050929
  Transmission Date: 20060501
  Serious: No
  Sender: FDA-Public Use
  Company Number: 2005PV002632

PATIENT
  Age: 61 Year
  Sex: Male
  Weight: 91.3998 kg

DRUGS (16)
  1. SYMLIN [Suspect]
     Indication: DIABETES MELLITUS NON-INSULIN-DEPENDENT
     Dosage: 60 MCG; SC
     Route: 058
     Dates: start: 20050928
  2. ACTOS [Concomitant]
  3. ATENOLOL [Concomitant]
  4. BENAZEPRIL HCL [Concomitant]
  5. COZAAR [Concomitant]
  6. CYMBALTA [Concomitant]
  7. ECOTRIN [Concomitant]
  8. INSULIN [Concomitant]
  9. NORVASC [Concomitant]
  10. NEXIUM [Concomitant]
  11. TRICOR [Concomitant]
  12. ZETIA [Concomitant]
  13. TYLENOL-500 [Concomitant]
  14. MULTIVITAMIN [Concomitant]
  15. FISH OIL [Concomitant]
  16. AMOXICILLIN [Concomitant]

REACTIONS (2)
  - ABDOMINAL PAIN LOWER [None]
  - WEIGHT DECREASED [None]
